FAERS Safety Report 7874393-7 (Version None)
Quarter: 2011Q4

REPORT INFORMATION
  Report Type: 
  Country: None (occurrence: None)
  Receive Date: 20111030
  Receipt Date: 20110519
  Transmission Date: 20120403
  Serious: No
  Sender: FDA-Public Use
  Company Number: US-AMGEN-USASP2011026010

PATIENT
  Age: 34 Year
  Sex: Female
  Weight: 86.168 kg

DRUGS (11)
  1. LYRICA [Concomitant]
     Dosage: 100 MG, UNK
     Route: 048
  2. CYCLOPHOSPHAMIDE [Concomitant]
     Dosage: 10 MG, UNK
     Route: 048
  3. SPIRONOLACTONE [Concomitant]
     Dosage: 25 MG, UNK
     Route: 048
  4. POTASSIUM [Concomitant]
     Dosage: 75 MG, UNK
     Route: 048
  5. ENBREL [Suspect]
     Indication: PRODUCT USED FOR UNKNOWN INDICATION
     Dosage: 50 MG, QWK
     Route: 058
  6. PROVENTIL HFA                      /00139501/ [Concomitant]
     Dosage: 10 MG, UNK
  7. CYMBALTA [Concomitant]
     Dosage: 20 MG, UNK
     Route: 048
  8. HYDROXYZINE PAM [Concomitant]
     Dosage: 100 MG, UNK
     Route: 048
  9. PREVACID [Concomitant]
     Dosage: 15 MG, UNK
     Route: 048
  10. CLARITIN                           /00413701/ [Concomitant]
     Dosage: 10 MG, UNK
     Route: 048
  11. SULFASALAZINE [Concomitant]
     Dosage: 500 MG, UNK
     Route: 048

REACTIONS (3)
  - SOMNOLENCE [None]
  - OEDEMA PERIPHERAL [None]
  - FATIGUE [None]
